FAERS Safety Report 14981399 (Version 1)
Quarter: 2018Q2

REPORT INFORMATION
  Report Type: Spontaneous
  Country: FR (occurrence: FR)
  Receive Date: 20180606
  Receipt Date: 20180606
  Transmission Date: 20180711
  Serious: Yes (Death, Hospitalization, Other)
  Sender: FDA-Public Use
  Company Number: FR-ALEXION PHARMACEUTICALS INC.-A201806912

PATIENT
  Age: 2 Year
  Sex: Female
  Weight: 13.8 kg

DRUGS (2)
  1. SOLIRIS [Suspect]
     Active Substance: ECULIZUMAB
     Indication: HAEMOLYTIC URAEMIC SYNDROME
     Dosage: 300 MG, QD
     Route: 042
     Dates: start: 20180521, end: 20180524
  2. SOLIRIS [Suspect]
     Active Substance: ECULIZUMAB
     Indication: OFF LABEL USE

REACTIONS (7)
  - Inappropriate schedule of drug administration [Unknown]
  - Oliguria [Unknown]
  - Hypoalbuminaemia [Unknown]
  - Neurological decompensation [Unknown]
  - Troponin increased [Unknown]
  - Off label use [Unknown]
  - Cardiac failure [Fatal]

NARRATIVE: CASE EVENT DATE: 20180521
